FAERS Safety Report 19849226 (Version 1)
Quarter: 2021Q3

REPORT INFORMATION
  Report Type: Report from Study
  Country: JP (occurrence: JP)
  Receive Date: 20210917
  Receipt Date: 20210917
  Transmission Date: 20211014
  Serious: Yes (Other)
  Sender: FDA-Public Use
  Company Number: JP-EMD SERONO-9218909

PATIENT
  Age: 76 Year
  Sex: Male

DRUGS (5)
  1. SILODOSIN. [Concomitant]
     Active Substance: SILODOSIN
     Indication: BENIGN PROSTATIC HYPERPLASIA
     Dosage: 2 TIMES
     Route: 048
  2. BETAHISTINE MESILATE [Concomitant]
     Active Substance: BETAHISTINE MESILATE
     Indication: DIZZINESS
     Dosage: 3 TIMES
     Route: 048
  3. TEPMETKO [Suspect]
     Active Substance: TEPOTINIB HYDROCHLORIDE
     Dosage: 1 TABLET
     Route: 048
     Dates: start: 20210120
  4. TEPMETKO [Suspect]
     Active Substance: TEPOTINIB HYDROCHLORIDE
     Indication: NON-SMALL CELL LUNG CANCER
     Dosage: 2 TABLETS
     Route: 048
     Dates: start: 20201027, end: 20210119
  5. FENOFIBRATE. [Concomitant]
     Active Substance: FENOFIBRATE
     Indication: FREE FATTY ACIDS
     Dosage: 1 TIME
     Route: 048

REACTIONS (2)
  - Fluid retention [Unknown]
  - Oedema peripheral [Not Recovered/Not Resolved]

NARRATIVE: CASE EVENT DATE: 20210105
